FAERS Safety Report 7154308-X (Version None)
Quarter: 2010Q4

REPORT INFORMATION
  Report Type: 
  Country: None (occurrence: None)
  Receive Date: 20101213
  Receipt Date: 20101130
  Transmission Date: 20110411
  Serious: Yes (Other)
  Sender: FDA-Public Use
  Company Number: GB-WATSON-2010-15719

PATIENT
  Age: 59 Year
  Sex: Female

DRUGS (5)
  1. RISPERDONE [Suspect]
     Indication: SCHIZOPHRENIA
     Dosage: 2 MG, BID
     Route: 048
  2. RISPERDONE [Suspect]
     Dosage: 3 MG, BID
     Route: 048
     Dates: start: 20091101
  3. RISPERDONE [Suspect]
     Dosage: 2 MG, UNKNOWN
     Route: 048
     Dates: start: 20080601
  4. IMUVAC                             /00027001/ [Suspect]
     Indication: INFLUENZA IMMUNISATION
     Dosage: UNK
     Dates: start: 20100901
  5. OMEPRAZOLE [Suspect]
     Indication: DYSPEPSIA
     Dosage: UNK
     Route: 048
     Dates: start: 20100201

REACTIONS (8)
  - ADVERSE DRUG REACTION [None]
  - DRUG INTERACTION [None]
  - DYSKINESIA [None]
  - EXTRAPYRAMIDAL DISORDER [None]
  - FATIGUE [None]
  - MUSCULOSKELETAL STIFFNESS [None]
  - RESTLESSNESS [None]
  - TREMOR [None]
